FAERS Safety Report 8478429-4 (Version None)
Quarter: 2012Q2

REPORT INFORMATION
  Report Type: 
  Country: None (occurrence: None)
  Receive Date: 20120615
  Receipt Date: 20120604
  Transmission Date: 20120825
  Serious: Yes (Other)
  Sender: FDA-Public Use
  Company Number: DSA_57814_2012

PATIENT

DRUGS (4)
  1. FLUOROURACIL [Suspect]
     Indication: GASTRIC CANCER
     Dosage: 1000 MG/M2 INTRAVENOUS (NOT OTHERWISE SPECIFIED,
     Route: 042
  2. FLUOROURACIL [Suspect]
     Indication: GASTRIC CANCER
     Dosage: 400 MG/M2 INTRAVENOUS BOLUS, 2400-3600 MG/M2
     Route: 040
  3. LEUCOVORIN CALCIUM [Suspect]
     Indication: GASTRIC CANCER
     Dosage: 200 MG/M2
  4. THERAPEUTIC RADIOPHARMACEUTICALS [Suspect]
     Indication: GASTRIC CANCER
     Dosage: DF

REACTIONS (1)
  - DIARRHOEA [None]
